FAERS Safety Report 20835812 (Version 1)
Quarter: 2022Q2

REPORT INFORMATION
  Report Type: Spontaneous
  Country: BR (occurrence: BR)
  Receive Date: 20220516
  Receipt Date: 20220516
  Transmission Date: 20220721
  Serious: Yes (Hospitalization)
  Sender: FDA-Public Use
  Company Number: BR-BIOMARINAP-BR-2022-142878

PATIENT
  Age: 32 Year
  Sex: Male

DRUGS (1)
  1. NAGLAZYME [Suspect]
     Active Substance: GALSULFASE
     Indication: Mucopolysaccharidosis VI
     Dosage: UNK
     Route: 042
     Dates: start: 20060501

REACTIONS (1)
  - Face oedema [Not Recovered/Not Resolved]

NARRATIVE: CASE EVENT DATE: 20220414
